FAERS Safety Report 7231961-3 (Version None)
Quarter: 2011Q1

REPORT INFORMATION
  Report Type: 
  Country: None (occurrence: None)
  Receive Date: 20110118
  Receipt Date: 20101122
  Transmission Date: 20110831
  Serious: Yes (Death, Hospitalization)
  Sender: FDA-Public Use
  Company Number: GB-AMGEN-GBRCT2010007255

PATIENT

DRUGS (5)
  1. RISEDRONIC ACID [Concomitant]
     Route: 048
  2. ETANERCEPT [Suspect]
     Indication: RHEUMATOID ARTHRITIS
  3. OMEPRAZOLE [Concomitant]
     Route: 048
  4. BENDROFLUMETHIAZIDE [Concomitant]
     Route: 048
  5. PREMARIN [Concomitant]
     Route: 048

REACTIONS (4)
  - CARDIAC ARREST [None]
  - ENCEPHALITIS [None]
  - OTITIS EXTERNA BACTERIAL [None]
  - STREPTOCOCCAL SEPSIS [None]
